FAERS Safety Report 15102091 (Version 5)
Quarter: 2020Q1

REPORT INFORMATION
  Report Type: Spontaneous
  Country: US (occurrence: US)
  Receive Date: 20180703
  Receipt Date: 20200124
  Transmission Date: 20200409
  Serious: Yes (Other)
  Sender: FDA-Public Use
  Company Number: US-SA-2018SA166049

PATIENT
  Age: 71 Year
  Sex: Male

DRUGS (19)
  1. AUBAGIO [Suspect]
     Active Substance: TERIFLUNOMIDE
     Dosage: 7 MG, QD
     Route: 048
     Dates: start: 2013
  2. VITAMIN D3 [Concomitant]
     Active Substance: CHOLECALCIFEROL
  3. AVODART [Concomitant]
     Active Substance: DUTASTERIDE
  4. VITAMIN D [VITAMIN D NOS] [Concomitant]
     Active Substance: VITAMIN D NOS
  5. MULTIVITAMIN [ASCORBIC ACID;BIOTIN;CALCIUM PANTOTHENATE;CYANOCOBALAMIN [Concomitant]
     Active Substance: VITAMINS
  6. ETODOLAC. [Concomitant]
     Active Substance: ETODOLAC
  7. PANTOPRAZOLE SODIUM. [Concomitant]
     Active Substance: PANTOPRAZOLE SODIUM
  8. GARLIC [ALLIUM SATIVUM] [Concomitant]
     Active Substance: GARLIC
  9. AVONEX [Concomitant]
     Active Substance: INTERFERON BETA-1A
  10. FISH OIL [Concomitant]
     Active Substance: FISH OIL
     Dosage: UNK
  11. PRESERVISION AREDS [Concomitant]
     Active Substance: MINERALS\VITAMINS
  12. PROTONIX [OMEPRAZOLE] [Concomitant]
     Active Substance: OMEPRAZOLE
  13. CO Q 10 [UBIDECARENONE] [Concomitant]
  14. AUBAGIO [Suspect]
     Active Substance: TERIFLUNOMIDE
     Indication: MULTIPLE SCLEROSIS
     Dosage: 7 MG, QD
     Route: 048
     Dates: start: 2012
  15. CITALOPRAM [Concomitant]
     Active Substance: CITALOPRAM HYDROBROMIDE
  16. CITALOPRAM HYDROBROMIDE. [Concomitant]
     Active Substance: CITALOPRAM HYDROBROMIDE
  17. AUBAGIO [Suspect]
     Active Substance: TERIFLUNOMIDE
     Dosage: 7 MG, QD
     Route: 048
     Dates: start: 201608
  18. LIPITOR [Concomitant]
     Active Substance: ATORVASTATIN CALCIUM
  19. TRAMADOL. [Concomitant]
     Active Substance: TRAMADOL

REACTIONS (14)
  - Intentional dose omission [Unknown]
  - Intentional product misuse [Unknown]
  - Liver disorder [Unknown]
  - Malaise [Unknown]
  - Decreased interest [Unknown]
  - Memory impairment [Unknown]
  - Product dose omission [Unknown]
  - Macular degeneration [Unknown]
  - Depressed mood [Unknown]
  - Impaired driving ability [Unknown]
  - Depression [Unknown]
  - Weight increased [Unknown]
  - Asthenia [Unknown]
  - Alanine aminotransferase increased [Unknown]

NARRATIVE: CASE EVENT DATE: 201803
